FAERS Safety Report 14012454 (Version 1)
Quarter: 2017Q3

REPORT INFORMATION
  Report Type: Spontaneous
  Country: US (occurrence: US)
  Receive Date: 20170926
  Receipt Date: 20170926
  Transmission Date: 20171128
  Serious: Yes (Other)
  Sender: FDA-Public Use
  Company Number: US-BRISTOL-MYERS SQUIBB COMPANY-BMS-2017-082004

PATIENT
  Age: 87 Year
  Sex: Male
  Weight: 79.37 kg

DRUGS (1)
  1. PRAVACHOL [Suspect]
     Active Substance: PRAVASTATIN SODIUM
     Indication: BLOOD CHOLESTEROL INCREASED
     Dosage: UNK
     Route: 048

REACTIONS (1)
  - Atrial flutter [Not Recovered/Not Resolved]

NARRATIVE: CASE EVENT DATE: 201705
